FAERS Safety Report 20526712 (Version 1)
Quarter: 2022Q1

REPORT INFORMATION
  Report Type: Spontaneous
  Country: US (occurrence: None)
  Receive Date: 20220227
  Receipt Date: 20220227
  Transmission Date: 20220423
  Serious: No
  Sender: FDA-Public Use
  Company Number: None

PATIENT
  Age: 37 Year
  Sex: Male
  Weight: 90 kg

DRUGS (3)
  1. DISULFIRAM [Suspect]
     Active Substance: DISULFIRAM
     Indication: Lyme disease
     Dosage: OTHER QUANTITY : 1 TABLET(S);?FREQUENCY : DAILY;?
     Route: 048
     Dates: start: 20220215, end: 20220222
  2. DISULFIRAM [Suspect]
     Active Substance: DISULFIRAM
     Indication: Off label use
  3. DISULFIRAM [Concomitant]
     Active Substance: DISULFIRAM

REACTIONS (12)
  - Optic neuritis [None]
  - Neuropathy peripheral [None]
  - Visual impairment [None]
  - Pain in extremity [None]
  - Myalgia [None]
  - Feeling abnormal [None]
  - Vision blurred [None]
  - Vision blurred [None]
  - Visual field defect [None]
  - Vision blurred [None]
  - Tularaemia [None]
  - Brucellosis [None]

NARRATIVE: CASE EVENT DATE: 20220222
